FAERS Safety Report 6255306-0 (Version None)
Quarter: 2009Q3

REPORT INFORMATION
  Report Type: 
  Country: None (occurrence: None)
  Receive Date: 20090702
  Receipt Date: 20090626
  Transmission Date: 20100115
  Serious: Yes (Death)
  Sender: FDA-Public Use
  Company Number: US-GILEAD-2009-0022723

PATIENT
  Sex: Female
  Weight: 40.86 kg

DRUGS (5)
  1. LETAIRIS [Suspect]
     Indication: PULMONARY ARTERIAL HYPERTENSION
     Route: 048
     Dates: start: 20090323, end: 20090529
  2. COUMADIN [Concomitant]
  3. VASOTEC [Concomitant]
  4. LASIX [Concomitant]
  5. POTASSIUM CHLORIDE [Concomitant]

REACTIONS (2)
  - RESPIRATORY FAILURE [None]
  - SEPSIS [None]
